FAERS Safety Report 16946031 (Version 1)
Quarter: 2019Q4

REPORT INFORMATION
  Report Type: Spontaneous
  Country: NL (occurrence: NL)
  Receive Date: 20191022
  Receipt Date: 20191022
  Transmission Date: 20200122
  Serious: Yes (Other)
  Sender: FDA-Public Use
  Company Number: NL-SA-2019SA289954

PATIENT
  Age: 58 Year
  Sex: Male
  Weight: 92 kg

DRUGS (4)
  1. ASCAL CARDIO [Concomitant]
     Active Substance: CARBASPIRIN
  2. EZETIMIBE. [Concomitant]
     Active Substance: EZETIMIBE
  3. CLOPIDOGREL [Concomitant]
     Active Substance: CLOPIDOGREL BISULFATE
  4. PRALUENT [Suspect]
     Active Substance: ALIROCUMAB
     Indication: LOW DENSITY LIPOPROTEIN
     Dosage: 150MG /2 WEEKS
     Dates: start: 20190625, end: 20191001

REACTIONS (12)
  - Disturbance in attention [Recovered/Resolved]
  - Fatigue [Recovered/Resolved]
  - Rash [Recovered/Resolved]
  - Nausea [Recovered/Resolved]
  - Back pain [Recovered/Resolved]
  - Abdominal pain [Recovered/Resolved]
  - Optic ischaemic neuropathy [Unknown]
  - Sleep disorder [Recovered/Resolved]
  - Muscular weakness [Recovered/Resolved]
  - Nasal congestion [Recovered/Resolved]
  - Condition aggravated [Not Recovered/Not Resolved]
  - Hyperkeratosis [Not Recovered/Not Resolved]

NARRATIVE: CASE EVENT DATE: 20190801
